FAERS Safety Report 17761896 (Version 1)
Quarter: 2020Q2

REPORT INFORMATION
  Report Type: Spontaneous
  Country: US (occurrence: US)
  Receive Date: 20200508
  Receipt Date: 20200508
  Transmission Date: 20200714
  Serious: No
  Sender: FDA-Public Use
  Company Number: US-TEVA-2020-US-1232229

PATIENT
  Sex: Male

DRUGS (1)
  1. TESTOSTERONE. [Suspect]
     Active Substance: TESTOSTERONE
     Dosage: 1 %
     Route: 065

REACTIONS (4)
  - Rhinorrhoea [Unknown]
  - Dizziness [Unknown]
  - Cough [Unknown]
  - Headache [Unknown]
